FAERS Safety Report 18161806 (Version 1)
Quarter: 2020Q3

REPORT INFORMATION
  Report Type: Spontaneous
  Country: PR (occurrence: PR)
  Receive Date: 20200815
  Receipt Date: 20200815
  Transmission Date: 20201103
  Serious: Yes (Disabling)
  Sender: FDA-Public Use
  Company Number: None

PATIENT
  Sex: Female
  Weight: 76.5 kg

DRUGS (4)
  1. BUTAL?ACETAMIN?CAFF [Concomitant]
  2. VITAMIN C [Concomitant]
     Active Substance: ASCORBIC ACID
  3. NASAL DESMOPRESSIN [Concomitant]
  4. STIMATE [Suspect]
     Active Substance: DESMOPRESSIN ACETATE
     Indication: HAEMOPHILIA
     Route: 045
     Dates: start: 20180222, end: 20200804

REACTIONS (4)
  - Disorientation [None]
  - Nausea [None]
  - Headache [None]
  - Fatigue [None]
